FAERS Safety Report 16009290 (Version 1)
Quarter: 2019Q1

REPORT INFORMATION
  Report Type: Report from Study
  Country: FR (occurrence: FR)
  Receive Date: 20190225
  Receipt Date: 20190225
  Transmission Date: 20190418
  Serious: Yes (Other)
  Sender: FDA-Public Use
  Company Number: FR-ROCHE-1596402

PATIENT
  Age: 59 Year
  Sex: Male
  Weight: 68 kg

DRUGS (4)
  1. ZELBORAF [Concomitant]
     Active Substance: VEMURAFENIB
     Route: 065
     Dates: start: 20150216
  2. CORTANCYL [Concomitant]
     Active Substance: PREDNISONE
     Indication: RADIOTHERAPY TO BRAIN
     Route: 065
     Dates: start: 201504
  3. COBIMETINIB. [Suspect]
     Active Substance: COBIMETINIB
     Indication: METASTATIC MALIGNANT MELANOMA
     Route: 048
     Dates: start: 20150507, end: 20150513
  4. KEPPRA [Concomitant]
     Active Substance: LEVETIRACETAM
     Route: 065
     Dates: start: 201501

REACTIONS (2)
  - Chorioretinopathy [Unknown]
  - Retinal detachment [Unknown]

NARRATIVE: CASE EVENT DATE: 20150511
